FAERS Safety Report 6172452-0 (Version None)
Quarter: 2009Q2

REPORT INFORMATION
  Report Type: 
  Country: None (occurrence: None)
  Receive Date: 20090424
  Receipt Date: 20081129
  Transmission Date: 20091009
  Serious: No
  Sender: FDA-Public Use
  Company Number: ALL1-2008-03429

PATIENT
  Age: 9 Year
  Sex: Male
  Weight: 42.6 kg

DRUGS (3)
  1. VYVANSE [Suspect]
     Indication: ANXIETY
     Dosage: 40 MG, 1X/DAY:QD, (2- 20MG CAPSULES OPENED AND DISSLOVED IN WATER), ORAL ; 20 MG, 1X/DAY:QD, ORAL
     Route: 048
     Dates: start: 20081125, end: 20081126
  2. VYVANSE [Suspect]
     Indication: ANXIETY
     Dosage: 40 MG, 1X/DAY:QD, (2- 20MG CAPSULES OPENED AND DISSLOVED IN WATER), ORAL ; 20 MG, 1X/DAY:QD, ORAL
     Route: 048
     Dates: start: 20081127
  3. ACETAMINOPHEN [Concomitant]

REACTIONS (2)
  - FATIGUE [None]
  - OFF LABEL USE [None]
